FAERS Safety Report 4964780-9 (Version None)
Quarter: 2006Q2

REPORT INFORMATION
  Report Type: 
  Country: None (occurrence: None)
  Receive Date: 20060403
  Receipt Date: 20060330
  Transmission Date: 20061013
  Serious: Yes (Hospitalization)
  Sender: FDA-Public Use
  Company Number: TPG2006A00105

PATIENT
  Age: 79 Year
  Sex: Male

DRUGS (2)
  1. LEUPROLIDE ACETATE [Suspect]
     Indication: PROSTATE CANCER
     Dosage: 11.25 MG (11.25 MG, 1 IN 13 M) SUBCUTANEOUS
     Route: 058
     Dates: start: 20051206, end: 20060206
  2. ZOMETA [Suspect]
     Indication: PROSTATE CANCER
     Dosage: 4 MG (4 MG, 1 IN 1 M) INTRAVENOUS
     Route: 042
     Dates: start: 20051206, end: 20060109

REACTIONS (4)
  - BLOOD CREATINE PHOSPHOKINASE INCREASED [None]
  - MUSCLE DISORDER [None]
  - MYOPATHY [None]
  - RHABDOMYOLYSIS [None]
